FAERS Safety Report 4267539-3 (Version None)
Quarter: 2004Q1

REPORT INFORMATION
  Report Type: 
  Country: None (occurrence: None)
  Receive Date: 20040109
  Receipt Date: 20030818
  Transmission Date: 20041129
  Serious: No
  Sender: FDA-Public Use
  Company Number: US-GLAXOSMITHKLINE-A0422295A

PATIENT
  Sex: Male

DRUGS (8)
  1. WELLBUTRIN [Suspect]
     Indication: DEPRESSION
     Route: 048
     Dates: start: 20030801
  2. ASPIRIN [Concomitant]
  3. COUMADIN [Concomitant]
  4. PROSCAR [Concomitant]
     Dosage: 5MG PER DAY
  5. METOPROLOL TARTRATE [Concomitant]
     Dosage: 50MG TWICE PER DAY
  6. TERAZOSIN HCL [Concomitant]
     Dosage: 5MG PER DAY
  7. ZOCOR [Concomitant]
     Dosage: 40MG PER DAY
  8. XANAX [Concomitant]

REACTIONS (1)
  - TINNITUS [None]
